FAERS Safety Report 9498521 (Version 1)
Quarter: 2013Q3

REPORT INFORMATION
  Report Type: Report from Study
  Country: GB (occurrence: GB)
  Receive Date: 20130904
  Receipt Date: 20130904
  Transmission Date: 20140515
  Serious: Yes (Other)
  Sender: FDA-Public Use
  Company Number: GB-GLAXOSMITHKLINE-B0915195A

PATIENT
  Age: 83 Year
  Sex: Female
  Weight: 66 kg

DRUGS (3)
  1. TYVERB [Suspect]
     Indication: BREAST CANCER METASTATIC
     Route: 065
     Dates: start: 201212
  2. CAPECITABINE [Concomitant]
     Dates: start: 201212
  3. HERCEPTIN [Concomitant]

REACTIONS (5)
  - Metastases to central nervous system [Unknown]
  - Pain in extremity [Recovered/Resolved]
  - Rash [Recovered/Resolved]
  - Palmar-plantar erythrodysaesthesia syndrome [Recovered/Resolved]
  - Incorrect dose administered [Unknown]
